FAERS Safety Report 8512967-0 (Version None)
Quarter: 2012Q3

REPORT INFORMATION
  Report Type: 
  Country: None (occurrence: None)
  Receive Date: 20120716
  Receipt Date: 20120706
  Transmission Date: 20120928
  Serious: Yes (Other)
  Sender: FDA-Public Use
  Company Number: US-ABBOTT-12P-163-0954165-00

PATIENT
  Sex: Female

DRUGS (3)
  1. IMURAN [Concomitant]
     Indication: RHEUMATOID ARTHRITIS
     Dosage: ON HOLD
  2. HUMIRA [Suspect]
     Indication: RHEUMATOID ARTHRITIS
     Dates: start: 20120301, end: 20120401
  3. METHOTREXATE [Concomitant]
     Indication: RHEUMATOID ARTHRITIS
     Dosage: ON HOLD

REACTIONS (3)
  - LUNG INFILTRATION [None]
  - PNEUMONIA [None]
  - MEDIASTINAL MASS [None]
